FAERS Safety Report 18996035 (Version 2)
Quarter: 2021Q1

REPORT INFORMATION
  Report Type: Report from Study
  Country: US (occurrence: US)
  Receive Date: 20210311
  Receipt Date: 20210317
  Transmission Date: 20210420
  Serious: Yes (Other)
  Sender: FDA-Public Use
  Company Number: US-SUNOVION-2021SUN000754

PATIENT
  Age: 37 Year
  Sex: Female
  Weight: 65.76 kg

DRUGS (3)
  1. LEXAPRO [Concomitant]
     Active Substance: ESCITALOPRAM OXALATE
     Indication: BIPOLAR DISORDER
     Dosage: UNK
  2. LATUDA [Suspect]
     Active Substance: LURASIDONE HYDROCHLORIDE
     Indication: BIPOLAR DISORDER
     Dosage: UNK
  3. ZOLOFT [Concomitant]
     Active Substance: SERTRALINE HYDROCHLORIDE
     Indication: BIPOLAR DISORDER

REACTIONS (5)
  - Premature rupture of membranes [Unknown]
  - Vulvovaginal injury [Unknown]
  - Gestational hypertension [Unknown]
  - Maternal exposure during pregnancy [Unknown]
  - Postpartum haemorrhage [Unknown]

NARRATIVE: CASE EVENT DATE: 20200515
